FAERS Safety Report 24139905 (Version 2)
Quarter: 2024Q4

REPORT INFORMATION
  Report Type: Spontaneous
  Country: CZ (occurrence: CZ)
  Receive Date: 20240726
  Receipt Date: 20241104
  Transmission Date: 20250114
  Serious: Yes (Death, Life-Threatening, Other)
  Sender: AUROBINDO
  Company Number: CZ-WOERWAG PHARMA GMBH-24320

PATIENT
  Age: 61 Year
  Sex: Male

DRUGS (3)
  1. METFORMIN [Suspect]
     Active Substance: METFORMIN HYDROCHLORIDE
     Indication: Type 2 diabetes mellitus
     Dosage: UNK
     Route: 065
  2. EMPAGLIFLOZIN [Concomitant]
     Active Substance: EMPAGLIFLOZIN
     Indication: Type 2 diabetes mellitus
     Dosage: UNK
     Route: 065
  3. LANTUS [Concomitant]
     Active Substance: INSULIN GLARGINE
     Indication: Type 2 diabetes mellitus
     Dosage: 12 IU/D
     Route: 065

REACTIONS (12)
  - Metabolic acidosis [Fatal]
  - Brain injury [Fatal]
  - Cerebral disorder [Fatal]
  - Ventricular fibrillation [Recovered/Resolved]
  - Lactic acidosis [Recovered/Resolved]
  - Renal tubular acidosis [Recovered/Resolved]
  - Euglycaemic diabetic ketoacidosis [Recovered/Resolved]
  - Ketoacidosis [Recovered/Resolved]
  - Arrhythmia [Unknown]
  - Vomiting [Unknown]
  - Nausea [Unknown]
  - Acidosis hyperchloraemic [Recovered/Resolved]
